FAERS Safety Report 4414947-3 (Version None)
Quarter: 2004Q3

REPORT INFORMATION
  Report Type: 
  Country: None (occurrence: None)
  Receive Date: 20040803
  Receipt Date: 20040803
  Transmission Date: 20050211
  Serious: Yes (Hospitalization)
  Sender: FDA-Public Use
  Company Number: None

PATIENT
  Sex: Female
  Weight: 59.1 kg

DRUGS (8)
  1. GLEEVEC [Suspect]
     Indication: GLIOBLASTOMA MULTIFORME
     Dosage: 400 MG QD X 8 PO
     Route: 048
     Dates: start: 20040718, end: 20040720
  2. TEMODAR [Suspect]
     Indication: GLIOBLASTOMA MULTIFORME
     Dosage: 250 MG QD X 5 PO
     Route: 048
     Dates: start: 20040716, end: 20040720
  3. KEPPRA [Concomitant]
  4. DECADRON [Concomitant]
  5. ADVAIR [Concomitant]
  6. SINGULAIR [Concomitant]
  7. ZANTAC [Concomitant]
  8. OS CAL [Concomitant]

REACTIONS (1)
  - DEPRESSED LEVEL OF CONSCIOUSNESS [None]
